FAERS Safety Report 15197429 (Version 1)
Quarter: 2018Q3

REPORT INFORMATION
  Report Type: Spontaneous
  Country: US (occurrence: US)
  Receive Date: 20180725
  Receipt Date: 20180725
  Transmission Date: 20181010
  Serious: No
  Sender: FDA-Public Use
  Company Number: US-BEH-2018093010

PATIENT
  Age: 56 Year
  Sex: Female

DRUGS (1)
  1. ZEMAIRA [Suspect]
     Active Substance: .ALPHA.1-PROTEINASE INHIBITOR HUMAN
     Indication: PRODUCT USED FOR UNKNOWN INDICATION
     Dosage: UNK
     Route: 065
     Dates: start: 2016

REACTIONS (1)
  - No adverse event [Unknown]
